FAERS Safety Report 16164945 (Version 1)
Quarter: 2019Q2

REPORT INFORMATION
  Report Type: Spontaneous
  Country: GB (occurrence: GB)
  Receive Date: 20190405
  Receipt Date: 20190405
  Transmission Date: 20190711
  Serious: Yes (Life-Threatening, Other)
  Sender: FDA-Public Use
  Company Number: GB-MYLANLABS-2019M1031367

PATIENT
  Age: 69 Year
  Sex: Male
  Weight: 75.5 kg

DRUGS (4)
  1. LISINOPRIL. [Concomitant]
     Active Substance: LISINOPRIL
     Dosage: 20 MILLIGRAM, QD
  2. TEGRETOL [Concomitant]
     Active Substance: CARBAMAZEPINE
     Dosage: 4 DOSAGE FORM, QD
  3. ATORVASTATIN [Concomitant]
     Active Substance: ATORVASTATIN
     Dosage: 40 MILLIGRAM, QD
  4. INDAPAMIDE. [Suspect]
     Active Substance: INDAPAMIDE
     Indication: ESSENTIAL HYPERTENSION
     Dosage: 1.5 MILLIGRAM
     Route: 048
     Dates: start: 20180623, end: 20180627

REACTIONS (6)
  - Syncope [Recovered/Resolved]
  - Heart rate irregular [Unknown]
  - Hyponatraemia [Recovered/Resolved]
  - Polyuria [Unknown]
  - Epilepsy [Recovered/Resolved]
  - Hypotension [Recovered/Resolved]

NARRATIVE: CASE EVENT DATE: 20180627
